FAERS Safety Report 9157801 (Version 1)
Quarter: 2013Q1

REPORT INFORMATION
  Report Type: Spontaneous
  Country: DE (occurrence: None)
  Receive Date: 20130212
  Receipt Date: 20130212
  Transmission Date: 20140127
  Serious: Yes (Other)
  Sender: FDA-Public Use
  Company Number: SYM-2013-00440

PATIENT
  Age: 74 Year
  Sex: 0

DRUGS (2)
  1. ELONTRIL [Suspect]
     Indication: MAJOR DEPRESSION
     Dosage: 300 MG, ORAL
     Dates: start: 200905
  2. ZOPICLONE [Suspect]
     Indication: PRODUCT USED FOR UNKNOWN INDICATION
     Dosage: ORAL

REACTIONS (4)
  - Renal failure chronic [None]
  - Hypertension [None]
  - Spinal pain [None]
  - Weight increased [None]
